FAERS Safety Report 8169208-6 (Version None)
Quarter: 2012Q1

REPORT INFORMATION
  Report Type: 
  Country: None (occurrence: None)
  Receive Date: 20120227
  Receipt Date: 20120217
  Transmission Date: 20120608
  Serious: Yes (Other)
  Sender: FDA-Public Use
  Company Number: US-ASTRAZENECA-2012SE05969

PATIENT
  Age: 66 Year
  Sex: Female

DRUGS (11)
  1. LISINOPRIL [Suspect]
     Route: 048
  2. ZOFRAN [Concomitant]
     Dosage: EVERY 8 HOURS AS REQUIRED
  3. FUROSEMIDE [Concomitant]
     Dosage: 20 MG EVERY DAY AS REQUIRED
  4. NEXIUM [Suspect]
     Route: 048
  5. HYDROCHLOROTHIAZIDE [Suspect]
     Route: 065
  6. VIT D2 [Concomitant]
     Route: 048
  7. POTASSIUM CL [Concomitant]
  8. METOPROLOL SUCCINATE [Concomitant]
     Route: 048
  9. LORAZEPAM [Concomitant]
  10. SULFA DRUGS [Suspect]
     Route: 065
  11. LEVOTHYROXINE SODIUM [Concomitant]

REACTIONS (5)
  - MUSCLE SPASMS [None]
  - ABDOMINAL DISCOMFORT [None]
  - LUNG NEOPLASM [None]
  - URINE OUTPUT DECREASED [None]
  - NEOPLASM MALIGNANT [None]
